FAERS Safety Report 6812361-4 (Version None)
Quarter: 2010Q3

REPORT INFORMATION
  Report Type: 
  Country: None (occurrence: None)
  Receive Date: 20100701
  Receipt Date: 20100622
  Transmission Date: 20110219
  Serious: Yes (Hospitalization)
  Sender: FDA-Public Use
  Company Number: FR-WYE-H15895910

PATIENT
  Age: 83 Year
  Sex: Male

DRUGS (9)
  1. AMIODARONE [Suspect]
     Indication: SUPRAVENTRICULAR EXTRASYSTOLES
     Route: 048
     Dates: start: 20100407, end: 20100416
  2. DOVOBET [Concomitant]
     Indication: PSORIASIS
     Dosage: DOSE AND FREQUENCY NOT SPECIFIED
     Route: 065
  3. TAHOR [Concomitant]
     Dosage: DOSE AND FREQUENCY NOT SPECIFIED
     Route: 065
  4. AMLOR [Concomitant]
     Indication: HYPERTENSION
     Dosage: DOSE AND FREQUENCY NOT SPECIFIED
     Route: 065
  5. LEVOTHYROXINE SODIUM [Concomitant]
     Indication: POST PROCEDURAL HYPOTHYROIDISM
     Dosage: DOSE AND FREQUENCY NOT SPECIFIED
     Route: 065
  6. KARDEGIC [Concomitant]
     Dosage: DOSE AND FREQUENCY NOT SPECIFIED
     Route: 065
  7. MIANSERIN [Suspect]
     Indication: DEPRESSION
     Route: 048
     Dates: start: 20100324, end: 20100401
  8. MIANSERIN [Suspect]
     Dosage: DOSE AND FREQUENCY NOT SPECIFIED
     Route: 048
     Dates: start: 20100101
  9. AMILORIDE HCL AND HYDROCHLOROTHIAZIDE [Concomitant]
     Indication: HYPERTENSION
     Dosage: DOSE AND FREQUENCY NOT SPECIFIED
     Route: 065

REACTIONS (6)
  - ACUTE GENERALISED EXANTHEMATOUS PUSTULOSIS [None]
  - DYSPHAGIA [None]
  - LIP OEDEMA [None]
  - PYREXIA [None]
  - RASH MACULO-PAPULAR [None]
  - RASH PUSTULAR [None]
